FAERS Safety Report 18537340 (Version 1)
Quarter: 2020Q4

REPORT INFORMATION
  Report Type: Spontaneous
  Country: US (occurrence: US)
  Receive Date: 20201123
  Receipt Date: 20201123
  Transmission Date: 20210114
  Serious: Yes (Other)
  Sender: FDA-Public Use
  Company Number: US-ELI_LILLY_AND_COMPANY-US202011005761

PATIENT
  Sex: Male

DRUGS (2)
  1. HUMALOG [Suspect]
     Active Substance: INSULIN LISPRO
     Indication: TYPE 1 DIABETES MELLITUS
     Dosage: 1 DOSAGE FORM, UNKNOWN
     Route: 065
  2. LYUMJEV [Suspect]
     Active Substance: INSULIN LISPRO-AABC
     Indication: TYPE 1 DIABETES MELLITUS
     Dosage: 1 DOSAGE FORM, UNKNOWN
     Route: 065

REACTIONS (2)
  - Drug ineffective [Recovered/Resolved]
  - Ketoacidosis [Unknown]
